FAERS Safety Report 5332365-0 (Version None)
Quarter: 2007Q2

REPORT INFORMATION
  Report Type: 
  Country: None (occurrence: None)
  Receive Date: 20070523
  Receipt Date: 20070521
  Transmission Date: 20071010
  Serious: Yes (Death, Hospitalization)
  Sender: FDA-Public Use
  Company Number: A0652455A

PATIENT
  Age: 79 Year
  Sex: Male
  Weight: 80 kg

DRUGS (3)
  1. SERETIDE [Suspect]
     Indication: CHRONIC OBSTRUCTIVE PULMONARY DISEASE
     Route: 055
     Dates: start: 20061101, end: 20070417
  2. HEPARIN [Concomitant]
     Dates: start: 20070126, end: 20070417
  3. DIPYRONE TAB [Concomitant]
     Dates: start: 20070126, end: 20070417

REACTIONS (3)
  - CELLULITIS [None]
  - DEATH [None]
  - THROMBOSIS [None]
